FAERS Safety Report 8233440-3 (Version None)
Quarter: 2012Q1

REPORT INFORMATION
  Report Type: 
  Country: None (occurrence: None)
  Receive Date: 20120326
  Receipt Date: 20120314
  Transmission Date: 20120608
  Serious: Yes (Death)
  Sender: FDA-Public Use
  Company Number: US-ELI_LILLY_AND_COMPANY-US201002005340

PATIENT
  Sex: Male

DRUGS (3)
  1. INSULIN [Concomitant]
     Dosage: UNK, 4/D
  2. FORTEO [Suspect]
     Dosage: 20 UG, QOD
     Dates: start: 20100101
  3. FORTEO [Suspect]
     Indication: OSTEOPOROSIS
     Dosage: 20 UG, DAILY (1/D)
     Dates: start: 20091217, end: 20100101

REACTIONS (4)
  - DRUG PRESCRIBING ERROR [None]
  - NAUSEA [None]
  - DIZZINESS [None]
  - DEATH [None]
